FAERS Safety Report 17119561 (Version 1)
Quarter: 2019Q4

REPORT INFORMATION
  Report Type: Spontaneous
  Country: TR (occurrence: TR)
  Receive Date: 20191206
  Receipt Date: 20191206
  Transmission Date: 20200122
  Serious: Yes (Other)
  Sender: FDA-Public Use
  Company Number: TR-TEVA-2019-TR-1149462

PATIENT
  Sex: Female

DRUGS (1)
  1. COPAXONE [Suspect]
     Active Substance: GLATIRAMER ACETATE
     Indication: MULTIPLE SCLEROSIS
     Route: 058

REACTIONS (5)
  - Dyspnoea [Recovered/Resolved]
  - Cyanosis [Recovered/Resolved]
  - Suspected product quality issue [Unknown]
  - Swelling [Recovered/Resolved]
  - Chest discomfort [Recovered/Resolved]
